FAERS Safety Report 11026743 (Version 3)
Quarter: 2015Q2

REPORT INFORMATION
  Report Type: Spontaneous
  Country: JP (occurrence: JP)
  Receive Date: 20150414
  Receipt Date: 20150506
  Transmission Date: 20150821
  Serious: Yes (Hospitalization)
  Sender: FDA-Public Use
  Company Number: JP-PFIZER INC-2015125460

PATIENT
  Age: 83 Year
  Sex: Female
  Weight: 38 kg

DRUGS (18)
  1. FORTEO [Concomitant]
     Active Substance: TERIPARATIDE
     Dosage: 600 ?G, UNK
  2. SENNA [Concomitant]
     Active Substance: SENNA LEAF\SENNOSIDES\SENNOSIDES A AND B
     Dosage: UNK
  3. SELBEX [Concomitant]
     Active Substance: TEPRENONE
     Dosage: UNK
  4. EPERISONE HYDROCHLORIDE [Suspect]
     Active Substance: EPERISONE HYDROCHLORIDE
     Indication: FACE INJURY
     Dosage: 50 MG, 2X/DAY
     Route: 048
     Dates: start: 20150223, end: 20150402
  5. EDIROL [Concomitant]
     Active Substance: ELDECALCITOL
     Dosage: 0.75 ?G, UNK
  6. BERIZYM /01945301/ [Concomitant]
     Dosage: UNK
  7. FEBURIC [Concomitant]
     Active Substance: FEBUXOSTAT
     Dosage: 10 MG, UNK
  8. CELECOX [Suspect]
     Active Substance: CELECOXIB
     Indication: SPINAL COMPRESSION FRACTURE
  9. PHENOBARBITAL /00023202/ [Concomitant]
     Dosage: 10 %, UNK
  10. BISOLVON [Concomitant]
     Active Substance: BROMHEXINE HYDROCHLORIDE
     Dosage: 4 MG, UNK
  11. ONEALFA [Concomitant]
     Active Substance: ALFACALCIDOL
     Dosage: 0.5 ?G, UNK
     Dates: end: 20150402
  12. CELECOX [Suspect]
     Active Substance: CELECOXIB
     Indication: FACE INJURY
  13. REBAMIPIDE [Suspect]
     Active Substance: REBAMIPIDE
     Indication: PROPHYLAXIS
     Dosage: 100 MG, 2X/DAY
     Route: 048
     Dates: start: 20150223, end: 20150330
  14. ALEVIATIN /00017401/ [Concomitant]
     Active Substance: PHENYTOIN SODIUM
     Dosage: 10 %, UNK
  15. CELECOX [Suspect]
     Active Substance: CELECOXIB
     Indication: RIB FRACTURE
     Dosage: 100 MG, 2X/DAY
     Route: 048
     Dates: start: 20150223, end: 20150402
  16. PITAVASTATIN CALCIUM [Concomitant]
     Active Substance: PITAVASTATIN CALCIUM
     Dosage: 1 MG, UNK
  17. PARIET [Concomitant]
     Active Substance: RABEPRAZOLE SODIUM
     Dosage: 10 MG, UNK
  18. FRANDOL [Concomitant]
     Active Substance: ISOSORBIDE DINITRATE
     Dosage: 40 MG, UNK

REACTIONS (2)
  - Acute kidney injury [Recovering/Resolving]
  - Intentional product misuse [Unknown]

NARRATIVE: CASE EVENT DATE: 20150223
